FAERS Safety Report 4316703-3 (Version None)
Quarter: 2004Q1

REPORT INFORMATION
  Report Type: 
  Country: None (occurrence: None)
  Receive Date: 20040311
  Receipt Date: 20040227
  Transmission Date: 20041129
  Serious: Yes (Hospitalization)
  Sender: FDA-Public Use
  Company Number: TEST00204000254

PATIENT
  Age: 53 Year
  Sex: Male
  Weight: 108.4097 kg

DRUGS (6)
  1. ANDROGEL [Suspect]
     Indication: ANDROGEN REPLACEMENT THERAPY
     Dosage: 5 G QD TD
     Dates: end: 20040126
  2. LOTREL (LOTREL) [Concomitant]
  3. PAXIL [Concomitant]
  4. XANAX [Concomitant]
  5. TOPRAL (SULTOPRIDE) [Concomitant]
  6. LEXAPRO (LEXAPRO) [Concomitant]

REACTIONS (2)
  - APPLICATION SITE REACTION [None]
  - CELLULITIS [None]
